FAERS Safety Report 4300372-2 (Version None)
Quarter: 2004Q1

REPORT INFORMATION
  Report Type: 
  Country: None (occurrence: None)
  Receive Date: 20040220
  Receipt Date: 20031010
  Transmission Date: 20041129
  Serious: Yes (Death)
  Sender: FDA-Public Use
  Company Number: JP-GLAXOSMITHKLINE-B0311915A

PATIENT
  Age: 84 Year
  Sex: Female

DRUGS (10)
  1. RANITIDINE [Suspect]
     Indication: UPPER GASTROINTESTINAL HAEMORRHAGE
     Dosage: 50MG PER DAY
     Route: 042
     Dates: start: 20030930, end: 20030930
  2. PILSICAINIDE HYDROCHLORIDE [Suspect]
     Indication: ATRIAL FIBRILLATION
     Dosage: 100MG PER DAY
     Route: 048
     Dates: start: 20030928
  3. MINOCYCLINE HCL [Concomitant]
     Indication: PNEUMONIA
     Dosage: 200MG PER DAY
     Route: 042
     Dates: start: 20030927, end: 20030930
  4. SULTAMICILLIN TOSILATE [Concomitant]
     Indication: PNEUMONIA
     Dosage: 3G PER DAY
     Dates: start: 20030926, end: 20030930
  5. FUROSEMIDE [Concomitant]
     Indication: CARDIAC FAILURE CHRONIC
     Dosage: 20MG PER DAY
     Route: 042
     Dates: start: 20030930, end: 20030930
  6. NILVADIPINE [Concomitant]
     Indication: HYPERTENSION
     Dosage: 4MG PER DAY
     Route: 048
     Dates: start: 19990101, end: 20030930
  7. IPRIFLAVONE [Concomitant]
     Indication: OSTEOPOROSIS
     Dosage: 400MG PER DAY
     Route: 048
     Dates: start: 19990101, end: 20030930
  8. OXYBUTYNIN HYDROCHLORIDE [Concomitant]
     Dosage: 4MG PER DAY
     Route: 048
     Dates: start: 19990101, end: 20030930
  9. REBAMIPIDE [Concomitant]
     Dosage: 200MG PER DAY
     Route: 048
     Dates: start: 19990101, end: 20030930
  10. SULINDAC [Concomitant]
     Dosage: 100MG PER DAY
     Route: 048
     Dates: start: 19990101, end: 20030930

REACTIONS (8)
  - ATRIAL FIBRILLATION [None]
  - ATRIAL FLUTTER [None]
  - CARDIAC ARREST [None]
  - DEPRESSED LEVEL OF CONSCIOUSNESS [None]
  - ELECTROCARDIOGRAM QT PROLONGED [None]
  - MELAENA [None]
  - UPPER GASTROINTESTINAL HAEMORRHAGE [None]
  - VENTRICULAR TACHYCARDIA [None]
